FAERS Safety Report 9404553 (Version 1)
Quarter: 2013Q3

REPORT INFORMATION
  Report Type: Spontaneous
  Country: US (occurrence: US)
  Receive Date: 20130717
  Receipt Date: 20130717
  Transmission Date: 20140515
  Serious: Yes (Other)
  Sender: FDA-Public Use
  Company Number: US-BAYER-2013-085287

PATIENT
  Age: 39 Year
  Sex: Female

DRUGS (1)
  1. GADAVIST [Suspect]
     Dosage: 30 CC, VIAL
     Dates: start: 20130710, end: 20130710

REACTIONS (4)
  - Choking sensation [Recovering/Resolving]
  - Cough [Recovering/Resolving]
  - Throat irritation [Recovering/Resolving]
  - Paraesthesia mucosal [Recovering/Resolving]
